FAERS Safety Report 7706657-1 (Version None)
Quarter: 2011Q3

REPORT INFORMATION
  Report Type: 
  Country: None (occurrence: None)
  Receive Date: 20110824
  Receipt Date: 20110817
  Transmission Date: 20111222
  Serious: Yes (Hospitalization)
  Sender: FDA-Public Use
  Company Number: US-JNJFOC-20110808892

PATIENT
  Sex: Male
  Weight: 81.65 kg

DRUGS (4)
  1. MAXIPIME [Suspect]
     Indication: PNEUMONIA
     Route: 042
     Dates: start: 20110101, end: 20110816
  2. MEROPENEM [Suspect]
     Indication: PNEUMONIA
     Route: 042
     Dates: start: 20110101, end: 20110816
  3. LEVAQUIN [Suspect]
     Indication: PNEUMONIA
     Route: 042
     Dates: start: 20110101
  4. VANCOMYCIN HCL [Suspect]
     Indication: PNEUMONIA
     Route: 042
     Dates: start: 20110101, end: 20110816

REACTIONS (6)
  - TREMOR [None]
  - ABNORMAL LOSS OF WEIGHT [None]
  - DEPRESSED LEVEL OF CONSCIOUSNESS [None]
  - CONTUSION [None]
  - CHROMATURIA [None]
  - ASTHENIA [None]
